FAERS Safety Report 24988373 (Version 2)
Quarter: 2025Q1

REPORT INFORMATION
  Report Type: Report from Study
  Country: US (occurrence: US)
  Receive Date: 20250220
  Receipt Date: 20250307
  Transmission Date: 20250409
  Serious: Yes (Other)
  Sender: ABBVIE
  Company Number: US-ABBVIE-6140807

PATIENT
  Age: 55 Year
  Sex: Female
  Weight: 66 kg

DRUGS (3)
  1. RINVOQ [Suspect]
     Active Substance: UPADACITINIB
     Indication: Rheumatoid arthritis
     Dosage: 15 MILLIGRAM
     Route: 048
     Dates: start: 20250203
  2. RINVOQ [Suspect]
     Active Substance: UPADACITINIB
     Indication: Rheumatoid arthritis
     Dosage: 15 MILLIGRAM
     Route: 048
     Dates: start: 20241016, end: 202501
  3. BUSPIRONE [Concomitant]
     Active Substance: BUSPIRONE HYDROCHLORIDE
     Indication: Anxiety

REACTIONS (4)
  - Arthralgia [Recovering/Resolving]
  - Arthritis [Recovering/Resolving]
  - Joint swelling [Recovered/Resolved]
  - Exostosis [Recovered/Resolved]

NARRATIVE: CASE EVENT DATE: 20241101
